FAERS Safety Report 5393279-3 (Version None)
Quarter: 2007Q3

REPORT INFORMATION
  Report Type: 
  Country: None (occurrence: None)
  Receive Date: 20070723
  Receipt Date: 20070710
  Transmission Date: 20080115
  Serious: Yes (Disabling, Other)
  Sender: FDA-Public Use
  Company Number: PHHO2007US11627

PATIENT
  Age: 62 Year
  Sex: Female
  Weight: 110 kg

DRUGS (1)
  1. ZELNORM [Suspect]
     Dosage: 3 DOSES DAILY
     Route: 048

REACTIONS (2)
  - DISEASE PROGRESSION [None]
  - GASTROINTESTINAL DISORDER [None]
